FAERS Safety Report 6425844-6 (Version None)
Quarter: 2009Q4

REPORT INFORMATION
  Report Type: 
  Country: None (occurrence: None)
  Receive Date: 20091103
  Receipt Date: 20091029
  Transmission Date: 20100525
  Serious: Yes (Hospitalization)
  Sender: FDA-Public Use
  Company Number: US-GILEAD-2009-0025096

PATIENT
  Sex: Female
  Weight: 126.21 kg

DRUGS (17)
  1. LETAIRIS [Suspect]
     Indication: PULMONARY ARTERIAL HYPERTENSION
     Route: 048
     Dates: start: 20090831
  2. REVATIO [Concomitant]
  3. SIMVASTATIN [Concomitant]
  4. DIOVAN [Concomitant]
  5. CLONIDINE HCL [Concomitant]
  6. ALDACTONE [Concomitant]
  7. LASIX [Concomitant]
  8. METFORMIN HCL [Concomitant]
  9. MOBIC [Concomitant]
  10. PROTONIX [Concomitant]
  11. R-O LACTULOSE [Concomitant]
  12. ALBUTEROL [Concomitant]
  13. ATIVAN [Concomitant]
  14. AMBIEN [Concomitant]
  15. HYDROCODONE BITARTRATE AND ACETAMINOPHEN [Concomitant]
  16. COLACE [Concomitant]
  17. POTASSIUM CHLORIDE [Concomitant]

REACTIONS (2)
  - BLOOD MAGNESIUM DECREASED [None]
  - OEDEMA [None]
